FAERS Safety Report 23591259 (Version 1)
Quarter: 2024Q1

REPORT INFORMATION
  Report Type: Spontaneous
  Country: FR (occurrence: FR)
  Receive Date: 20240304
  Receipt Date: 20240304
  Transmission Date: 20240409
  Serious: Yes (Hospitalization)
  Sender: FDA-Public Use
  Company Number: None

PATIENT
  Age: 23 Year
  Sex: Male

DRUGS (4)
  1. VALIUM [Suspect]
     Active Substance: DIAZEPAM
     Indication: Product used for unknown indication
     Route: 050
  2. METHYL-AP-237 [Suspect]
     Active Substance: METHYL-AP-237
     Indication: Product used for unknown indication
     Route: 050
  3. DESMETRAMADOL [Suspect]
     Active Substance: DESMETRAMADOL
     Indication: Product used for unknown indication
     Route: 050
  4. 2-FLUOROMETHAMPHETAMINE [Suspect]
     Active Substance: 2-FLUOROMETHAMPHETAMINE
     Indication: Product used for unknown indication
     Route: 050

REACTIONS (5)
  - Cyanosis [Recovered/Resolved]
  - Sinus tachycardia [Unknown]
  - Coma [Recovered/Resolved]
  - Respiratory distress [Recovered/Resolved]
  - Drug abuse [Not Recovered/Not Resolved]

NARRATIVE: CASE EVENT DATE: 20240201
